FAERS Safety Report 15418317 (Version 1)
Quarter: 2018Q3

REPORT INFORMATION
  Report Type: Spontaneous
  Country: US (occurrence: US)
  Receive Date: 20180924
  Receipt Date: 20180924
  Transmission Date: 20181010
  Serious: Yes (Hospitalization, Disabling, Other)
  Sender: FDA-Public Use
  Company Number: US-PFIZER INC-2018378326

PATIENT
  Age: 62 Year
  Sex: Female
  Weight: 136 kg

DRUGS (24)
  1. LIPITOR [Concomitant]
     Active Substance: ATORVASTATIN CALCIUM
     Indication: HYPERLIPIDAEMIA
     Dosage: 40 MG, 1X/DAY, AT BEDTIME
     Route: 048
  2. IPRATROPIUM/ALBUTEROL [Concomitant]
     Active Substance: ALBUTEROL\IPRATROPIUM
     Indication: DYSPNOEA
     Dosage: 2.5 MG, 3X/DAY
  3. ALLOPURINOL. [Concomitant]
     Active Substance: ALLOPURINOL
     Indication: GOUT
     Dosage: 200 MG, 1X/DAY
     Route: 048
  4. SOLEXA [Concomitant]
     Active Substance: CELECOXIB
     Dosage: 60 MG, 1X/DAY, EVERY MORNING
     Route: 048
  5. FLEXERIL [CYCLOBENZAPRINE HYDROCHLORIDE] [Concomitant]
     Indication: MUSCLE SPASMS
     Dosage: 10 MG, 3X/DAY
     Route: 048
     Dates: start: 20180907
  6. MELATONIN [Concomitant]
     Active Substance: MELATONIN
     Indication: INSOMNIA
     Dosage: 10 MG, 1X/DAY, AT BEDTIME
     Route: 048
  7. ASPERCREME WITH LIDOCAINE [Concomitant]
     Active Substance: LIDOCAINE
     Indication: PAIN IN EXTREMITY
  8. BABY ASPIRIN [Concomitant]
     Active Substance: ASPIRIN
     Indication: BLOOD DISORDER
     Dosage: 81 MG, 1X/DAY, AT BEDTIME
     Route: 048
  9. LISINOPRIL. [Concomitant]
     Active Substance: LISINOPRIL
     Indication: CARDIAC FAILURE
     Dosage: 10 MG, 1X/DAY, IN THE MORNING
     Route: 048
     Dates: start: 2004
  10. ASPERCREME WITH LIDOCAINE [Concomitant]
     Active Substance: LIDOCAINE
     Indication: BACK PAIN
     Dosage: EVERY 8 HOURS, 3X/DAY
     Route: 061
  11. VOLTAREN EX GEL [Concomitant]
     Indication: PAIN
     Dosage: 1 %, 4X/DAY
     Dates: start: 20180907
  12. TYLENOL EXTRA STRENGTH [Concomitant]
     Active Substance: ACETAMINOPHEN
     Indication: PAIN
     Dosage: 1000 MG, 2X/DAY, AS NEEDED
     Route: 048
  13. AMITRIPTYLINE/KETAMINE [Concomitant]
     Indication: DIABETIC NEUROPATHY
     Dosage: 4X/DAY DORSAL FEET AND TOES BILATERALLY
     Route: 061
  14. IPRATROPIUM/ALBUTEROL [Concomitant]
     Active Substance: ALBUTEROL\IPRATROPIUM
     Indication: CARDIAC FAILURE
  15. GABAPENTIN. [Suspect]
     Active Substance: GABAPENTIN
     Dosage: 300 MG IN THE MORNING AND 600 MG IN THE EVENING
  16. TOPROL XL [Concomitant]
     Active Substance: METOPROLOL SUCCINATE
     Indication: HYPERTENSION
     Dosage: 100 MG, 1X/DAY, IN THE MORNING
     Route: 048
  17. TORSEMIDE. [Concomitant]
     Active Substance: TORSEMIDE
     Indication: DIURETIC THERAPY
     Dosage: 100 MG, 2X/DAY
     Route: 048
     Dates: start: 20180706
  18. VITRON?C [Concomitant]
     Active Substance: ASCORBIC ACID\IRON
     Indication: RESTLESS LEGS SYNDROME
     Dosage: 65 MG
     Route: 048
  19. ASPERCREME WITH LIDOCAINE [Concomitant]
     Active Substance: LIDOCAINE
     Indication: MUSCULOSKELETAL PAIN
  20. VITAMIN B12 [Concomitant]
     Active Substance: CYANOCOBALAMIN
     Indication: HAEMOLYTIC ANAEMIA
     Dosage: 1000 UG, 1X/DAY
     Route: 058
     Dates: start: 20180801
  21. INSULIN [Concomitant]
     Active Substance: INSULIN NOS
     Indication: DIABETES MELLITUS
     Dosage: 70 IN THE MORNING AND 80 AT 5:30 PM
     Route: 058
     Dates: start: 200401
  22. GABAPENTIN. [Suspect]
     Active Substance: GABAPENTIN
     Dosage: 600 MG, 2X/DAY
     Route: 048
     Dates: start: 201805, end: 20180905
  23. VITRON?C [Concomitant]
     Active Substance: ASCORBIC ACID\IRON
     Indication: NEUROPATHY PERIPHERAL
  24. OXYCODONE [Concomitant]
     Active Substance: OXYCODONE
     Indication: PAIN
     Dosage: 5 MG, 1X/DAY, AT BEDTIME
     Route: 048
     Dates: start: 20180601

REACTIONS (12)
  - Grip strength decreased [Not Recovered/Not Resolved]
  - Foot fracture [Unknown]
  - Drug ineffective [Unknown]
  - Somnolence [Unknown]
  - Condition aggravated [Not Recovered/Not Resolved]
  - Hallucination [Recovered/Resolved]
  - Fall [Recovered/Resolved]
  - Neuropathy peripheral [Unknown]
  - Movement disorder [Unknown]
  - Condition aggravated [Unknown]
  - Skin ulcer [Unknown]
  - Haemoglobin decreased [Unknown]

NARRATIVE: CASE EVENT DATE: 2018
